FAERS Safety Report 9106749 (Version 2)
Quarter: 2013Q1

REPORT INFORMATION
  Report Type: Spontaneous
  Country: US (occurrence: US)
  Receive Date: 20130221
  Receipt Date: 20130319
  Transmission Date: 20140127
  Serious: Yes (Other)
  Sender: FDA-Public Use
  Company Number: US-JNJFOC-20130207869

PATIENT
  Age: 60 Year
  Sex: Male

DRUGS (8)
  1. INFLIXIMAB, RECOMBINANT [Suspect]
     Indication: PITYRIASIS RUBRA PILARIS
     Route: 042
  2. INFLIXIMAB, RECOMBINANT [Suspect]
     Indication: PITYRIASIS RUBRA PILARIS
     Route: 042
  3. INFLIXIMAB, RECOMBINANT [Suspect]
     Indication: PITYRIASIS RUBRA PILARIS
     Dosage: 27 MONTHS DURATION
     Route: 042
     Dates: start: 200810
  4. ALLOPURINOL [Concomitant]
     Route: 065
  5. METFORMIN ER [Concomitant]
     Route: 065
  6. SITAGLIPTIN [Concomitant]
     Route: 065
  7. CLOBETASOL [Concomitant]
     Route: 061
  8. TRIAMCINOLONE ACETONIDE [Concomitant]
     Route: 061

REACTIONS (4)
  - Vitiligo [Recovering/Resolving]
  - Pityriasis rubra pilaris [Not Recovered/Not Resolved]
  - Drug effect incomplete [Recovering/Resolving]
  - Off label use [Unknown]
